FAERS Safety Report 23547995 (Version 1)
Quarter: 2024Q1

REPORT INFORMATION
  Report Type: Spontaneous
  Country: KR (occurrence: KR)
  Receive Date: 20240221
  Receipt Date: 20240221
  Transmission Date: 20240410
  Serious: Yes (Hospitalization)
  Sender: FDA-Public Use
  Company Number: KR-TEVA-VS-3159610

PATIENT
  Age: 28 Year
  Sex: Male

DRUGS (1)
  1. NUVIGIL [Suspect]
     Active Substance: ARMODAFINIL
     Indication: Narcolepsy
     Dosage: 2-3 TABLETS DAILY
     Route: 048

REACTIONS (3)
  - Psychiatric symptom [Not Recovered/Not Resolved]
  - Rash [Unknown]
  - Overdose [Unknown]
